FAERS Safety Report 21636969 (Version 2)
Quarter: 2023Q1

REPORT INFORMATION
  Report Type: Report from Study
  Country: US (occurrence: US)
  Receive Date: 20221124
  Receipt Date: 20230131
  Transmission Date: 20230418
  Serious: Yes (Death, Hospitalization, Other)
  Sender: FDA-Public Use
  Company Number: US-TAIHO-2022-002502

PATIENT
  Age: 61 Year
  Sex: Female
  Weight: 61.69 kg

DRUGS (11)
  1. LONSURF [Suspect]
     Active Substance: TIPIRACIL HYDROCHLORIDE\TRIFLURIDINE
     Indication: Colon cancer
     Dosage: CYCLE 4
     Route: 048
     Dates: start: 20220730
  2. LONSURF [Suspect]
     Active Substance: TIPIRACIL HYDROCHLORIDE\TRIFLURIDINE
     Dosage: CYCLE 4
     Route: 048
     Dates: start: 202209
  3. BENTYL [Concomitant]
     Active Substance: DICYCLOMINE HYDROCHLORIDE
     Indication: Product used for unknown indication
  4. FLUOROURACIL [Concomitant]
     Active Substance: FLUOROURACIL
     Indication: Product used for unknown indication
  5. IRINOTECAN HYDROCHLORIDE [Concomitant]
     Active Substance: IRINOTECAN HYDROCHLORIDE
     Indication: Product used for unknown indication
  6. LEUCOVORIN CALCIUM [Concomitant]
     Active Substance: LEUCOVORIN CALCIUM
     Indication: Product used for unknown indication
  7. LOPERAMIDE [Concomitant]
     Active Substance: LOPERAMIDE
     Indication: Product used for unknown indication
  8. PEPTO-BISMOL [Concomitant]
     Active Substance: BISMUTH SUBSALICYLATE
     Indication: Product used for unknown indication
  9. SEROQUEL [Concomitant]
     Active Substance: QUETIAPINE FUMARATE
     Indication: Product used for unknown indication
  10. VECTIBIX [Concomitant]
     Active Substance: PANITUMUMAB
     Indication: Product used for unknown indication
  11. ZIRABEV [Concomitant]
     Active Substance: BEVACIZUMAB-BVZR
     Indication: Product used for unknown indication

REACTIONS (4)
  - Death [Fatal]
  - Blood culture positive [Unknown]
  - Feeling cold [Not Recovered/Not Resolved]
  - Sneezing [Not Recovered/Not Resolved]

NARRATIVE: CASE EVENT DATE: 20221101
